FAERS Safety Report 5429150-8 (Version None)
Quarter: 2007Q3

REPORT INFORMATION
  Report Type: 
  Country: None (occurrence: None)
  Receive Date: 20070824
  Receipt Date: 20070814
  Transmission Date: 20080115
  Serious: Yes (Other)
  Sender: FDA-Public Use
  Company Number: 159554ISR

PATIENT
  Age: 59 Year
  Sex: Female

DRUGS (3)
  1. CISPLATIN [Suspect]
     Indication: BLADDER CANCER
  2. EPIRUBICIN [Suspect]
     Indication: BLADDER CANCER
  3. METHOTREXATE [Suspect]
     Indication: BLADDER CANCER

REACTIONS (4)
  - ANOREXIA [None]
  - FATIGUE [None]
  - HEPATITIS B [None]
  - REVERSIBLE POSTERIOR LEUKOENCEPHALOPATHY SYNDROME [None]
